FAERS Safety Report 13495830 (Version 1)
Quarter: 2017Q2

REPORT INFORMATION
  Report Type: Spontaneous
  Country: FR (occurrence: FR)
  Receive Date: 20170428
  Receipt Date: 20170428
  Transmission Date: 20170830
  Serious: Yes (Hospitalization, Other)
  Sender: FDA-Public Use
  Company Number: FR-PFIZER INC-2017179992

PATIENT
  Age: 48 Year
  Sex: Male

DRUGS (8)
  1. VANCOMYCIN MYLAN [Suspect]
     Active Substance: VANCOMYCIN
     Indication: DEBRIDEMENT
     Dosage: 1.5 G, 3X/DAY
     Route: 042
     Dates: start: 20170207, end: 20170211
  2. LANTUS [Concomitant]
     Active Substance: INSULIN GLARGINE
     Route: 058
  3. TRIFLUCAN [Suspect]
     Active Substance: FLUCONAZOLE
     Indication: DEBRIDEMENT
     Dosage: UNK
     Dates: start: 20170207, end: 20170214
  4. ACTRAPID [Concomitant]
     Active Substance: INSULIN HUMAN
     Route: 058
  5. EFFERALGAN [Concomitant]
     Active Substance: ACETAMINOPHEN
     Route: 048
  6. SPECIAFOLDINE [Concomitant]
     Active Substance: FOLIC ACID
     Route: 048
  7. LOVENOX [Concomitant]
     Active Substance: ENOXAPARIN SODIUM
     Route: 058
  8. TAZOCILLINE [Suspect]
     Active Substance: PIPERACILLIN SODIUM\TAZOBACTAM SODIUM
     Indication: DEBRIDEMENT
     Dosage: 4 G, 3X/DAY
     Route: 042
     Dates: start: 20170207, end: 20170214

REACTIONS (1)
  - Acute kidney injury [Recovered/Resolved]

NARRATIVE: CASE EVENT DATE: 20170211
